FAERS Safety Report 5237748-5 (Version None)
Quarter: 2007Q1

REPORT INFORMATION
  Report Type: 
  Country: None (occurrence: None)
  Receive Date: 20070214
  Receipt Date: 20070213
  Transmission Date: 20070707
  Serious: Yes (Other)
  Sender: FDA-Public Use
  Company Number: US-GLAXOSMITHKLINE-A0637969A

PATIENT
  Age: 75 Year
  Sex: Female

DRUGS (14)
  1. ADVAIR DISKUS 100/50 [Suspect]
     Indication: EMPHYSEMA
     Route: 055
     Dates: start: 20060101
  2. METFORMIN HCL [Concomitant]
  3. DIOVAN [Concomitant]
  4. ACTOS [Concomitant]
  5. ZETIA [Concomitant]
  6. TANDEM PLUS [Concomitant]
  7. ASMANEX TWISTHALER [Concomitant]
  8. ALTACE [Concomitant]
  9. COUMADIN [Concomitant]
  10. ZOLOFT [Concomitant]
  11. NITROQUICK [Concomitant]
  12. FUROSEMIDE [Concomitant]
  13. LORAZEPAM [Concomitant]
  14. LANTUS [Concomitant]

REACTIONS (3)
  - DIZZINESS [None]
  - HYPOGLYCAEMIA [None]
  - LOSS OF CONSCIOUSNESS [None]
